FAERS Safety Report 18916095 (Version 1)
Quarter: 2021Q1

REPORT INFORMATION
  Report Type: Spontaneous
  Country: US (occurrence: US)
  Receive Date: 20210219
  Receipt Date: 20210219
  Transmission Date: 20210420
  Serious: No
  Sender: FDA-Public Use
  Company Number: US-THERAPEUTICSMD-2020TMD05953

PATIENT
  Age: 58 Year
  Sex: Female

DRUGS (1)
  1. BIJUVA [Suspect]
     Active Substance: ESTRADIOL\PROGESTERONE
     Dosage: UNK

REACTIONS (1)
  - Menstrual disorder [Unknown]
